FAERS Safety Report 17698822 (Version 9)
Quarter: 2021Q2

REPORT INFORMATION
  Report Type: Report from Study
  Country: US (occurrence: US)
  Receive Date: 20200423
  Receipt Date: 20210625
  Transmission Date: 20210716
  Serious: Yes (Hospitalization)
  Sender: FDA-Public Use
  Company Number: NVSC2020US108074

PATIENT
  Sex: Female

DRUGS (1)
  1. COSENTYX [Suspect]
     Active Substance: SECUKINUMAB
     Indication: PSORIASIS
     Dosage: 300 MG, QMO
     Route: 058
     Dates: start: 20200303

REACTIONS (12)
  - Rash [Unknown]
  - Skin exfoliation [Unknown]
  - Pain in extremity [Unknown]
  - Hypertension [Recovering/Resolving]
  - Vision blurred [Recovering/Resolving]
  - Arthralgia [Unknown]
  - Urinary tract infection [Unknown]
  - Diarrhoea [Unknown]
  - Drug ineffective [Unknown]
  - Skin haemorrhage [Unknown]
  - Stress [Unknown]
  - Back pain [Unknown]
